FAERS Safety Report 23356773 (Version 2)
Quarter: 2024Q1

REPORT INFORMATION
  Report Type: Spontaneous
  Country: US (occurrence: US)
  Receive Date: 20240102
  Receipt Date: 20240115
  Transmission Date: 20240409
  Serious: No
  Sender: FDA-Public Use
  Company Number: US-ABBVIE-5561089

PATIENT

DRUGS (1)
  1. RINVOQ [Suspect]
     Active Substance: UPADACITINIB
     Indication: Inflammatory bowel disease
     Route: 048

REACTIONS (6)
  - COVID-19 [Unknown]
  - Influenza [Unknown]
  - Nasopharyngitis [Unknown]
  - Poor quality sleep [Unknown]
  - Immune system disorder [Unknown]
  - Acne [Unknown]

NARRATIVE: CASE EVENT DATE: 20231201
